FAERS Safety Report 23810062 (Version 2)
Quarter: 2024Q3

REPORT INFORMATION
  Report Type: Spontaneous
  Country: PK (occurrence: PK)
  Receive Date: 20240502
  Receipt Date: 20240701
  Transmission Date: 20241016
  Serious: Yes (Death)
  Sender: PFIZER
  Company Number: PK-PFIZER INC-PV202300142936

PATIENT
  Age: 47 Year
  Sex: Female

DRUGS (1)
  1. TRAZIMERA [Suspect]
     Active Substance: TRASTUZUMAB-QYYP
     Indication: Breast cancer
     Dosage: 440 MG, 3 WEEKLIES
     Route: 042
     Dates: start: 20230821

REACTIONS (2)
  - Death [Fatal]
  - Off label use [Unknown]
